FAERS Safety Report 10869052 (Version 1)
Quarter: 2015Q1

REPORT INFORMATION
  Report Type: Spontaneous
  Country: CN (occurrence: CN)
  Receive Date: 20150225
  Receipt Date: 20150225
  Transmission Date: 20150721
  Serious: Yes (Hospitalization)
  Sender: FDA-Public Use
  Company Number: PHHY2015CN018752

PATIENT
  Age: 9 Year
  Sex: Male

DRUGS (2)
  1. ASCORBIC ACID. [Suspect]
     Active Substance: ASCORBIC ACID
     Indication: INFLUENZA
  2. ASCORBIC ACID. [Suspect]
     Active Substance: ASCORBIC ACID
     Indication: NASOPHARYNGITIS
     Dosage: 3 G, QD
     Route: 065

REACTIONS (7)
  - Hyperoxaluria [Recovered/Resolved]
  - Calculus urinary [Recovered/Resolved]
  - Renal pain [Recovered/Resolved]
  - Haematuria [Recovered/Resolved]
  - Nausea [Recovered/Resolved]
  - Vomiting [Recovered/Resolved]
  - Abdominal pain [Recovered/Resolved]

NARRATIVE: CASE EVENT DATE: 201104
